FAERS Safety Report 6379478-2 (Version None)
Quarter: 2009Q3

REPORT INFORMATION
  Report Type: 
  Country: None (occurrence: None)
  Receive Date: 20090928
  Receipt Date: 20090918
  Transmission Date: 20100115
  Serious: Yes (Other)
  Sender: FDA-Public Use
  Company Number: B0595046A

PATIENT
  Age: 65 Year
  Sex: Female

DRUGS (1)
  1. ACYCLOVIR [Suspect]
     Dosage: 900MG THREE TIMES PER DAY
     Route: 042
     Dates: start: 20090101

REACTIONS (2)
  - HYPOKALAEMIA [None]
  - RENAL TUBULAR DISORDER [None]
